FAERS Safety Report 4367566-1 (Version None)
Quarter: 2004Q2

REPORT INFORMATION
  Report Type: 
  Country: None (occurrence: None)
  Receive Date: 20040601
  Receipt Date: 20040210
  Transmission Date: 20050107
  Serious: Yes (Hospitalization, Disabling)
  Sender: FDA-Public Use
  Company Number: US-MERCK-0402USA00868

PATIENT
  Age: 80 Year
  Sex: Male
  Weight: 91 kg

DRUGS (14)
  1. NORVASC [Concomitant]
     Route: 065
  2. ASPIRIN [Concomitant]
     Route: 065
  3. BUMEX [Concomitant]
     Route: 065
  4. PLETAL [Concomitant]
     Route: 065
  5. CLARITHROMYCIN [Concomitant]
     Route: 065
  6. GLYBURIDE [Concomitant]
     Route: 065
  7. METOPROLOL [Concomitant]
     Route: 065
  8. NITROPASTE [Concomitant]
     Route: 065
  9. ZYPREXA [Concomitant]
     Route: 065
  10. PROTONIX [Concomitant]
     Route: 065
  11. ACCUPRIL [Concomitant]
     Route: 065
  12. ZOCOR [Suspect]
     Indication: HYPERCHOLESTEROLAEMIA
     Route: 048
     Dates: start: 19970410, end: 20040129
  13. ZOCOR [Suspect]
     Indication: CORONARY ARTERY DISEASE
     Route: 048
     Dates: start: 19970410, end: 20040129
  14. ARTANE [Concomitant]
     Route: 065

REACTIONS (12)
  - ACUTE RESPIRATORY FAILURE [None]
  - AORTIC STENOSIS [None]
  - CARDIAC FAILURE CONGESTIVE [None]
  - CARDIAC MURMUR [None]
  - CARDIOMEGALY [None]
  - MYOCARDIAL INFARCTION [None]
  - PNEUMONIA [None]
  - RESPIRATORY TRACT INFECTION [None]
  - RHABDOMYOLYSIS [None]
  - SKIN ULCER [None]
  - SPUTUM PURULENT [None]
  - STAPHYLOCOCCAL INFECTION [None]
